FAERS Safety Report 24942485 (Version 2)
Quarter: 2025Q1

REPORT INFORMATION
  Report Type: Spontaneous
  Country: US (occurrence: US)
  Receive Date: 20250207
  Receipt Date: 20250210
  Transmission Date: 20250409
  Serious: No
  Sender: SANOFI AVENTIS
  Company Number: US-SA-2024SA101549

PATIENT
  Age: 3 Year
  Sex: Female
  Weight: 16.1 kg

DRUGS (3)
  1. DUPIXENT [Suspect]
     Active Substance: DUPILUMAB
     Indication: Dermatitis atopic
     Dosage: 200 MG, Q4W
     Route: 058
     Dates: start: 20230913
  2. EUCRISA [Concomitant]
     Active Substance: CRISABOROLE
  3. FLUCONAZOLE [Concomitant]
     Active Substance: FLUCONAZOLE

REACTIONS (3)
  - Pruritus [Recovering/Resolving]
  - Therapeutic response decreased [Unknown]
  - Incorrect dose administered [Unknown]

NARRATIVE: CASE EVENT DATE: 20230913
